FAERS Safety Report 7494796-2 (Version None)
Quarter: 2011Q2

REPORT INFORMATION
  Report Type: 
  Country: None (occurrence: None)
  Receive Date: 20110520
  Receipt Date: 20110513
  Transmission Date: 20111010
  Serious: Yes (Life-Threatening, Hospitalization, Disabling, Other)
  Sender: FDA-Public Use
  Company Number: A0924388A

PATIENT
  Age: 73 Year
  Sex: Male

DRUGS (5)
  1. LOVAZA [Suspect]
     Dosage: 4G UNKNOWN
     Route: 048
     Dates: start: 20081001
  2. METFORMIN HCL [Concomitant]
  3. ALTACE [Concomitant]
  4. FENOFIBRATE [Concomitant]
  5. ACARBOSE [Concomitant]

REACTIONS (5)
  - CEREBROVASCULAR ACCIDENT [None]
  - HEMIPLEGIA [None]
  - HYPERTENSIVE CRISIS [None]
  - HAEMORRHAGIC DIATHESIS [None]
  - HAEMORRHAGE INTRACRANIAL [None]
